FAERS Safety Report 8967700 (Version 1)
Quarter: 2012Q4

REPORT INFORMATION
  Report Type: Spontaneous
  Country: GB (occurrence: None)
  Receive Date: 20121210
  Receipt Date: 20121210
  Transmission Date: 20130627
  Serious: Yes (Hospitalization)
  Sender: FDA-Public Use
  Company Number: FK201203682

PATIENT
  Age: 58 Year
  Sex: Male

DRUGS (10)
  1. OXALIPLATIN [Suspect]
     Indication: GASTRIC CANCER
  2. EPIRUBICIN [Suspect]
     Indication: GASTRIC CANCER
  3. CAPECITABINE [Suspect]
     Indication: GASTRIC CANCER
  4. CLOZARIL (CLOZAPINE) [Suspect]
     Indication: GASTRIC CANCER
     Route: 048
     Dates: start: 20010701, end: 20120718
  5. CLOZARIL (CLOZAPINE) [Suspect]
     Indication: GASTRIC CANCER
     Route: 048
     Dates: start: 20120721
  6. DALIVIT (DALIVIT) [Concomitant]
  7. HALOPERIDOL (HALOPERIDOL) [Concomitant]
  8. MOVICARD (MOVICARD) [Concomitant]
  9. PROCYCLIDINE (PROCYCLIDINE) [Concomitant]
  10. THIAMIN (THIAMINE HYDROCHLORIDE) [Concomitant]

REACTIONS (3)
  - Neutrophil count decreased [None]
  - Platelet count decreased [None]
  - White blood cell count increased [None]
